FAERS Safety Report 21057085 (Version 1)
Quarter: 2022Q3

REPORT INFORMATION
  Report Type: Spontaneous
  Country: US (occurrence: None)
  Receive Date: 20220707
  Receipt Date: 20220707
  Transmission Date: 20221027
  Serious: Yes (Other)
  Sender: FDA-Public Use
  Company Number: None

PATIENT
  Age: 31 Year
  Sex: Female
  Weight: 85.5 kg

DRUGS (3)
  1. AL0038100 ALBA HW SUNSCREEN COCONUT MILK SPF50 [Suspect]
     Active Substance: AVOBENZONE\HOMOSALATE\OCTISALATE\OCTOCRYLENE
     Indication: Prophylaxis against solar radiation
     Dosage: OTHER FREQUENCY : EVERY 80 MIN;?
     Route: 061
     Dates: start: 20220703, end: 20220703
  2. VITAMINS [Concomitant]
     Active Substance: VITAMINS
  3. SYNTHROID [Concomitant]
     Active Substance: LEVOTHYROXINE SODIUM

REACTIONS (2)
  - Application site burn [None]
  - Application site pain [None]

NARRATIVE: CASE EVENT DATE: 20220703
